FAERS Safety Report 21133791 (Version 1)
Quarter: 2022Q3

REPORT INFORMATION
  Report Type: Spontaneous
  Country: IN (occurrence: IN)
  Receive Date: 20220726
  Receipt Date: 20220726
  Transmission Date: 20221026
  Serious: Yes (Other)
  Sender: FDA-Public Use
  Company Number: IN-MYLANLABS-2022M1081300

PATIENT
  Age: 28 Year
  Sex: Male

DRUGS (3)
  1. METHOTREXATE [Suspect]
     Active Substance: METHOTREXATE
     Indication: Morphoea
     Dosage: 15 MILLIGRAM, QW
     Route: 048
  2. TACROLIMUS [Suspect]
     Active Substance: TACROLIMUS
     Indication: Morphoea
     Dosage: 0.1 PERCENT, QD
     Route: 061
  3. CLOBETASOL PROPIONATE [Suspect]
     Active Substance: CLOBETASOL PROPIONATE
     Indication: Morphoea
     Dosage: 0.05 PERCENT, QD
     Route: 065

REACTIONS (4)
  - Drug ineffective for unapproved indication [Unknown]
  - Skin atrophy [Unknown]
  - Skin hypopigmentation [Unknown]
  - Off label use [Unknown]
